FAERS Safety Report 7538792-5 (Version None)
Quarter: 2011Q2

REPORT INFORMATION
  Report Type: 
  Country: None (occurrence: None)
  Receive Date: 20110610
  Receipt Date: 20110509
  Transmission Date: 20111010
  Serious: Yes (Other)
  Sender: FDA-Public Use
  Company Number: US-BAYER-201039057NA

PATIENT
  Age: 32 Year
  Sex: Female
  Weight: 86.168 kg

DRUGS (11)
  1. CLARINEX [Concomitant]
     Route: 048
  2. MAGNESIUM SULFATE [Concomitant]
     Route: 048
  3. YASMIN [Suspect]
     Indication: PRODUCT USED FOR UNKNOWN INDICATION
     Dosage: UNK UNK, QD
     Route: 048
     Dates: start: 20060101, end: 20080101
  4. MAXALT [Concomitant]
     Route: 048
  5. RIBOFLAVIN [Concomitant]
     Route: 048
  6. PHAZYME [Concomitant]
     Indication: FLATULENCE
     Route: 048
  7. ORAL CONTRACEPTIVE NOS [Concomitant]
     Route: 048
  8. YAZ [Suspect]
     Indication: PRODUCT USED FOR UNKNOWN INDICATION
     Dosage: UNK
     Dates: start: 20060101, end: 20080101
  9. DROSPIRENONE AND ETHINYL ESTRADIOL [Suspect]
     Indication: PRODUCT USED FOR UNKNOWN INDICATION
     Dosage: UNK
     Dates: start: 20060101, end: 20080101
  10. BENADRYL [Concomitant]
     Indication: MULTIPLE ALLERGIES
     Route: 048
  11. ADVIL LIQUI-GELS [Concomitant]
     Route: 048

REACTIONS (3)
  - GALLBLADDER NON-FUNCTIONING [None]
  - CHOLECYSTITIS CHRONIC [None]
  - ANXIETY [None]
